FAERS Safety Report 6749751-4 (Version None)
Quarter: 2010Q2

REPORT INFORMATION
  Report Type: 
  Country: None (occurrence: None)
  Receive Date: 20100527
  Receipt Date: 20100512
  Transmission Date: 20101027
  Serious: Yes (Hospitalization, Other)
  Sender: FDA-Public Use
  Company Number: 2010001931

PATIENT
  Age: 74 Year
  Sex: Female

DRUGS (9)
  1. TARCEVA [Suspect]
     Indication: NON-SMALL CELL LUNG CANCER
     Dosage: 150 MG, QD, ORAL
     Route: 048
     Dates: start: 20090129
  2. BUTAPIRAZOL (PHENYLBUTAZONE) [Suspect]
     Indication: PHLEBITIS
     Dosage: 2X PER DAY, TOPICAL
     Route: 061
     Dates: start: 20090324
  3. HEPARIN [Suspect]
     Indication: PHLEBITIS
     Dosage: TOPICAL
     Route: 061
     Dates: start: 20090324
  4. LORINDEN (FLUMETASONE PIVALATE) [Suspect]
     Indication: SKIN DISORDER
     Dosage: 2X PER DAY, TOPICAL
     Route: 061
     Dates: start: 20090201
  5. CLODRONIC ACID (CLODRONIC ACID) [Concomitant]
  6. ASPIRIN [Concomitant]
  7. HEPATIL (ORNITHINE ASPARTATE) [Concomitant]
  8. BISOPROLOL FUMARATE [Concomitant]
  9. HEPAREGEN (TIMONACIC) [Concomitant]

REACTIONS (14)
  - ALANINE AMINOTRANSFERASE INCREASED [None]
  - ASPARTATE AMINOTRANSFERASE INCREASED [None]
  - ASTHENIA [None]
  - BLOOD BILIRUBIN INCREASED [None]
  - CARDIAC OPERATION [None]
  - CHEST PAIN [None]
  - DERMATITIS [None]
  - DIARRHOEA [None]
  - FEELING ABNORMAL [None]
  - LIVER FUNCTION TEST ABNORMAL [None]
  - MYOCARDIAL INFARCTION [None]
  - PNEUMONIA [None]
  - PYREXIA [None]
  - RASH [None]
